FAERS Safety Report 7634461-1 (Version None)
Quarter: 2011Q3

REPORT INFORMATION
  Report Type: 
  Country: None (occurrence: None)
  Receive Date: 20110725
  Receipt Date: 20110718
  Transmission Date: 20111222
  Serious: Yes (Other)
  Sender: FDA-Public Use
  Company Number: PHHY2011DE64718

PATIENT
  Age: 67 Year
  Sex: Male

DRUGS (2)
  1. CHEMOTHERAPEUTICS [Concomitant]
  2. ZOMETA [Suspect]
     Indication: PROSTATE CANCER
     Dosage: UNK
     Dates: start: 20030701, end: 20070307

REACTIONS (1)
  - OSTEOMYELITIS [None]
